FAERS Safety Report 5086598-1 (Version None)
Quarter: 2006Q3

REPORT INFORMATION
  Report Type: 
  Country: None (occurrence: None)
  Receive Date: 20060703
  Receipt Date: 20060214
  Transmission Date: 20061208
  Serious: No
  Sender: FDA-Public Use
  Company Number: 2006S1001425

PATIENT
  Age: 55 Year
  Sex: Female

DRUGS (15)
  1. CLOZAPINE [Suspect]
     Indication: SCHIZOPHRENIA
     Dosage: 200 MG; QAM; ORAL, SEE IMAGE
     Route: 048
     Dates: start: 20060101
  2. FLUTICASONE PROPIONATE [Concomitant]
  3. SALMETEROL XINAFOATE [Concomitant]
  4. ALBUTEROL SPIROS [Concomitant]
  5. ROSIGLITAZONE MALEATE [Concomitant]
  6. VALPROATE SEMSODIUM [Concomitant]
  7. DILTIAZEM HCL [Concomitant]
  8. FOLIC ACID [Concomitant]
  9. FUROSEMIDE [Concomitant]
  10. HALOPERIDOL [Concomitant]
  11. ATORVASTATIN [Concomitant]
  12. INSULIN HUMAN SEMISYNTHETIC/INSULIN ISOPHANE [Concomitant]
  13. HUMAN SEMISYNTHETIC [Concomitant]
  14. CALCIUM ACETATE [Concomitant]
  15. EPOGEN [Concomitant]

REACTIONS (2)
  - GRANULOCYTOPENIA [None]
  - LEUKOPENIA [None]
